FAERS Safety Report 23698072 (Version 1)
Quarter: 2024Q2

REPORT INFORMATION
  Report Type: Spontaneous
  Country: DE (occurrence: DE)
  Receive Date: 20240402
  Receipt Date: 20240402
  Transmission Date: 20240716
  Serious: Yes (Other)
  Sender: FDA-Public Use
  Company Number: DE-B.Braun Medical Inc.-2155141

PATIENT
  Sex: Male

DRUGS (9)
  1. ACETAMINOPHEN [Suspect]
     Active Substance: ACETAMINOPHEN
  2. IBUPROFEN [Suspect]
     Active Substance: IBUPROFEN
  3. NAPROXEN [Suspect]
     Active Substance: NAPROXEN
  4. METAMIZOLE [Suspect]
     Active Substance: METAMIZOLE
  5. CLONIDINE [Suspect]
     Active Substance: CLONIDINE
  6. NALOXONE HYDROCHLORIDE\OXYCODONE HYDROCHLORIDE [Suspect]
     Active Substance: NALOXONE HYDROCHLORIDE\OXYCODONE HYDROCHLORIDE
  7. OXYCODONE [Suspect]
     Active Substance: OXYCODONE\OXYCODONE HYDROCHLORIDE
  8. PREGABALIN [Suspect]
     Active Substance: PREGABALIN
  9. CANNABIS SATIVA SUBSP. INDICA TOP [Suspect]
     Active Substance: CANNABIS SATIVA SUBSP. INDICA TOP

REACTIONS (13)
  - Hyperhidrosis [Recovering/Resolving]
  - Impaired quality of life [Recovering/Resolving]
  - Social problem [Recovering/Resolving]
  - Gastrointestinal disorder [Recovering/Resolving]
  - Inadequate analgesia [Unknown]
  - Labelled drug-drug interaction issue [Unknown]
  - Decreased activity [Recovering/Resolving]
  - Drug withdrawal syndrome [Recovering/Resolving]
  - Malaise [Recovering/Resolving]
  - Drug withdrawal maintenance therapy [Unknown]
  - Loss of libido [Recovering/Resolving]
  - Somnolence [Recovering/Resolving]
  - Drug dependence [Recovered/Resolved]
